FAERS Safety Report 5606409-2 (Version None)
Quarter: 2008Q1

REPORT INFORMATION
  Report Type: 
  Country: None (occurrence: None)
  Receive Date: 20080129
  Receipt Date: 20070926
  Transmission Date: 20080703
  Serious: No
  Sender: FDA-Public Use
  Company Number: A0685368A

PATIENT
  Age: 60 Year
  Sex: Male
  Weight: 79.5 kg

DRUGS (13)
  1. WELLBUTRIN [Suspect]
     Route: 048
  2. INTERFERON ALPHA [Concomitant]
     Indication: HEPATITIS C
     Dosage: 15UG PER DAY
     Route: 058
     Dates: start: 20060418
  3. RIBAVIRIN [Concomitant]
  4. PLAVIX [Concomitant]
  5. ASPIRIN [Concomitant]
  6. ALTACE [Concomitant]
  7. TOPROL-XL [Concomitant]
  8. PRAVACHOL [Concomitant]
  9. GLIPIZIDE [Concomitant]
  10. TRICOR [Concomitant]
  11. INSULIN [Concomitant]
  12. NORVASC [Concomitant]
  13. PROCRIT [Concomitant]

REACTIONS (1)
  - HEADACHE [None]
